FAERS Safety Report 12162538 (Version 1)
Quarter: 2016Q1

REPORT INFORMATION
  Report Type: Spontaneous
  Country: US (occurrence: None)
  Receive Date: 20160308
  Receipt Date: 20160308
  Transmission Date: 20160526
  Serious: Yes (Other)
  Sender: FDA-Public Use
  Company Number: None

PATIENT
  Age: 33 Year
  Sex: Male
  Weight: 90.72 kg

DRUGS (1)
  1. TOPIRAMATE 50MG [Suspect]
     Active Substance: TOPIRAMATE
     Indication: CONCUSSION
     Dosage: 1 TWICE DAILY TAKEN BY MOUTH
     Route: 048
     Dates: start: 20140630, end: 20150702

REACTIONS (1)
  - Poisoning [None]

NARRATIVE: CASE EVENT DATE: 20150703
